FAERS Safety Report 6766851-3 (Version None)
Quarter: 2010Q2

REPORT INFORMATION
  Report Type: 
  Country: None (occurrence: None)
  Receive Date: 20100611
  Receipt Date: 20100601
  Transmission Date: 20101027
  Serious: Yes (Hospitalization, Other)
  Sender: FDA-Public Use
  Company Number: US-WATSON-2010-07432

PATIENT
  Age: 27 Year
  Sex: Male

DRUGS (3)
  1. METHYLPHENIDATE HYDROCHLORIDE [Suspect]
     Indication: ATTENTION DEFICIT/HYPERACTIVITY DISORDER
     Dosage: 25MG SINGLE
  2. METHYLPHENIDATE HYDROCHLORIDE [Suspect]
     Dosage: 5-10 MG, BID
  3. PSEUDOEPHEDRINE [Suspect]
     Indication: SINUSITIS
     Dosage: UNK

REACTIONS (3)
  - ACUTE MYOCARDIAL INFARCTION [None]
  - INCORRECT DOSE ADMINISTERED [None]
  - POTENTIATING DRUG INTERACTION [None]
